FAERS Safety Report 5235544-6 (Version None)
Quarter: 2007Q1

REPORT INFORMATION
  Report Type: 
  Country: None (occurrence: None)
  Receive Date: 20070207
  Receipt Date: 20070207
  Transmission Date: 20070707
  Serious: Yes (Other)
  Sender: FDA-Public Use
  Company Number: None

PATIENT
  Sex: Female
  Weight: 78.4723 kg

DRUGS (2)
  1. BUDESONIDE [Suspect]
  2. LEVALBUTEROL HCL [Suspect]

REACTIONS (5)
  - ASTHMA [None]
  - BACK PAIN [None]
  - COUGH [None]
  - DRUG DISPENSING ERROR [None]
  - MEDICATION ERROR [None]
